FAERS Safety Report 22067146 (Version 1)
Quarter: 2023Q1

REPORT INFORMATION
  Report Type: Spontaneous
  Country: CA (occurrence: CA)
  Receive Date: 20230307
  Receipt Date: 20230307
  Transmission Date: 20230418
  Serious: Yes (Other)
  Sender: FDA-Public Use
  Company Number: CA-ABBVIE-4326898

PATIENT
  Age: 54 Year
  Sex: Male
  Weight: 83 kg

DRUGS (9)
  1. HUMIRA [Suspect]
     Active Substance: ADALIMUMAB
     Indication: Product used for unknown indication
     Route: 058
     Dates: start: 2021
  2. HUMIRA [Suspect]
     Active Substance: ADALIMUMAB
     Route: 058
     Dates: start: 20230214
  3. COVID-19 vaccine [Concomitant]
     Indication: COVID-19 immunisation
     Dosage: DOSE 4, FREQUENCY ONE IN ONCE
     Route: 030
     Dates: start: 20230112, end: 20230112
  4. COVID-19 vaccine [Concomitant]
     Indication: COVID-19 immunisation
     Dosage: DOSE 1, FREQUENCY ONE IN ONCE
     Route: 030
  5. COVID-19 vaccine [Concomitant]
     Indication: COVID-19 immunisation
     Dosage: DOSE 5, FREQUENCY ONE IN ONCE
     Route: 030
     Dates: start: 20230220, end: 20230220
  6. COVID-19 vaccine [Concomitant]
     Indication: COVID-19 immunisation
     Dosage: DOSE 3, FREQUENCY ONE IN ONCE
     Route: 030
  7. COVID-19 vaccine [Concomitant]
     Indication: COVID-19 immunisation
     Dosage: 2ND DOSE, FREQUENCY ONE IN ONCE
     Route: 030
  8. PREDNISONE [Concomitant]
     Active Substance: PREDNISONE
     Indication: Product used for unknown indication
     Dates: start: 2020
  9. INFLUENZA VIRUS VACCINE [Concomitant]
     Active Substance: INFLUENZA VIRUS VACCINE
     Indication: Product used for unknown indication
     Dates: start: 202211

REACTIONS (5)
  - Drug dependence [Unknown]
  - Drug hypersensitivity [Unknown]
  - Surgery [Unknown]
  - Knee arthroplasty [Unknown]
  - Arthralgia [Unknown]

NARRATIVE: CASE EVENT DATE: 20220223
